FAERS Safety Report 15315260 (Version 1)
Quarter: 2018Q3

REPORT INFORMATION
  Report Type: Report from Study
  Country: US (occurrence: US)
  Receive Date: 20180824
  Receipt Date: 20180824
  Transmission Date: 20181010
  Serious: Yes (Other)
  Sender: FDA-Public Use
  Company Number: US-ROCHE-2160006

PATIENT
  Age: 13 Year
  Sex: Male
  Weight: 60.1 kg

DRUGS (4)
  1. NUTROPIN AQ [Suspect]
     Active Substance: SOMATROPIN
     Indication: GROWTH HORMONE DEFICIENCY
     Dosage: ALTERNATE 1.8 MG WITH 2.0 MG
     Route: 058
     Dates: start: 20180515
  2. NUTROPIN AQ [Suspect]
     Active Substance: SOMATROPIN
     Route: 058
  3. ZITHROMAX [Concomitant]
     Active Substance: AZITHROMYCIN DIHYDRATE
     Dosage: 2 TAB TODAY AND 1 TAB DAILY FOR 4 DAYS
     Route: 048
  4. NUTROPIN AQ [Suspect]
     Active Substance: SOMATROPIN
     Indication: HYPOPITUITARISM
     Dosage: ALTERNATE 1.8 MG WITH 2.0 MG ;ONGOING: YES
     Route: 058
     Dates: start: 201206

REACTIONS (9)
  - Ankle fracture [Unknown]
  - Blood pressure abnormal [Unknown]
  - Decreased appetite [Recovered/Resolved]
  - Insulin-like growth factor increased [Unknown]
  - Appendicitis [Unknown]
  - Influenza [Unknown]
  - Pain in extremity [Unknown]
  - Musculoskeletal disorder [Unknown]
  - Weight decreased [Unknown]

NARRATIVE: CASE EVENT DATE: 20160201
